FAERS Safety Report 17290720 (Version 1)
Quarter: 2020Q1

REPORT INFORMATION
  Report Type: Spontaneous
  Country: US (occurrence: US)
  Receive Date: 20200121
  Receipt Date: 20200121
  Transmission Date: 20200409
  Serious: No
  Sender: FDA-Public Use
  Company Number: US-ALLERGAN-1921480US

PATIENT

DRUGS (1)
  1. NORETHINDRONE UNK [Suspect]
     Active Substance: NORETHINDRONE ACETATE
     Indication: EXPOSURE VIA BREAST MILK
     Dosage: 0.35 MG
     Route: 063

REACTIONS (1)
  - Exposure via breast milk [Unknown]
